FAERS Safety Report 8235786-1 (Version None)
Quarter: 2012Q1

REPORT INFORMATION
  Report Type: 
  Country: None (occurrence: None)
  Receive Date: 20120326
  Receipt Date: 20120315
  Transmission Date: 20120608
  Serious: No
  Sender: FDA-Public Use
  Company Number: US-ASTRAZENECA-2012SE17822

PATIENT
  Age: 73 Year
  Sex: Female
  Weight: 63.5 kg

DRUGS (8)
  1. PRILOSEC [Suspect]
     Route: 048
  2. COZAAR [Concomitant]
     Indication: HYPERTENSION
     Route: 048
  3. ATENOLOL [Concomitant]
     Indication: BLOOD PRESSURE ABNORMAL
     Route: 048
  4. EYE DROPS [Concomitant]
     Indication: GLAUCOMA
     Route: 050
  5. XANAX [Concomitant]
     Indication: ANXIOLYTIC THERAPY
     Dosage: PRN
     Route: 048
  6. PRILOSEC [Suspect]
     Indication: GASTROOESOPHAGEAL REFLUX DISEASE
     Route: 048
     Dates: start: 20120304
  7. PRILOSEC OTC [Concomitant]
     Route: 048
  8. SIMVASTATIN [Concomitant]
     Indication: BLOOD CHOLESTEROL ABNORMAL
     Dosage: HS
     Route: 048

REACTIONS (5)
  - ERUCTATION [None]
  - INAPPROPRIATE SCHEDULE OF DRUG ADMINISTRATION [None]
  - FLATULENCE [None]
  - ABDOMINAL DISTENSION [None]
  - CHILLS [None]
